FAERS Safety Report 16741994 (Version 1)
Quarter: 2019Q3

REPORT INFORMATION
  Report Type: Spontaneous
  Country: FR (occurrence: FR)
  Receive Date: 20190826
  Receipt Date: 20190826
  Transmission Date: 20191005
  Serious: Yes (Hospitalization)
  Sender: FDA-Public Use
  Company Number: FR-TEVA-2019-FR-1096945

PATIENT
  Age: 79 Year
  Sex: Male
  Weight: 162 kg

DRUGS (3)
  1. RIFAMPICINE [Suspect]
     Active Substance: RIFAMPIN
     Indication: OSTEITIS
     Dosage: 900 MG
     Route: 048
     Dates: start: 201906, end: 20190614
  2. LEVOFLOXACINE [Suspect]
     Active Substance: LEVOFLOXACIN
     Indication: OSTEITIS
     Dosage: 250MG
     Route: 048
     Dates: start: 201906, end: 20190614
  3. OXYCODONE [Concomitant]
     Active Substance: OXYCODONE
     Indication: PAIN
     Dosage: 120MG
     Route: 048

REACTIONS (3)
  - Eosinophilia [Recovered/Resolved]
  - Acute kidney injury [Recovered/Resolved]
  - Rash pruritic [Recovered/Resolved]

NARRATIVE: CASE EVENT DATE: 20190614
